FAERS Safety Report 21839281 (Version 1)
Quarter: 2023Q1

REPORT INFORMATION
  Report Type: Report from Study
  Country: IT (occurrence: IT)
  Receive Date: 20230109
  Receipt Date: 20230109
  Transmission Date: 20230418
  Serious: Yes (Life-Threatening, Hospitalization, Other)
  Sender: FDA-Public Use
  Company Number: IT-009507513-2210ITA004617

PATIENT
  Age: 45 Year
  Sex: Female

DRUGS (32)
  1. PACLITAXEL [Suspect]
     Active Substance: PACLITAXEL
     Indication: Product used for unknown indication
     Dosage: 135 MILLIGRAM, QW
     Route: 065
     Dates: start: 20220530, end: 20220530
  2. PACLITAXEL [Suspect]
     Active Substance: PACLITAXEL
     Dosage: 135 MILLIGRAM, QW
     Route: 065
     Dates: start: 20220607, end: 20220607
  3. PACLITAXEL [Suspect]
     Active Substance: PACLITAXEL
     Dosage: 135 MILLIGRAM, QW
     Route: 065
     Dates: start: 20220615, end: 20220615
  4. PACLITAXEL [Suspect]
     Active Substance: PACLITAXEL
     Dosage: 135 MILLIGRAM, QW
     Route: 065
     Dates: start: 20220621, end: 20220621
  5. PACLITAXEL [Suspect]
     Active Substance: PACLITAXEL
     Dosage: 135 MILLIGRAM, QW
     Route: 065
     Dates: start: 20220628, end: 20220628
  6. PACLITAXEL [Suspect]
     Active Substance: PACLITAXEL
     Dosage: 135 MILLIGRAM, QW
     Route: 065
     Dates: start: 20220705, end: 20220705
  7. PACLITAXEL [Suspect]
     Active Substance: PACLITAXEL
     Dosage: 135 MILLIGRAM, QW
     Route: 065
     Dates: start: 20220720, end: 20220720
  8. PACLITAXEL [Suspect]
     Active Substance: PACLITAXEL
     Dosage: 135 MILLIGRAM, QW
     Route: 065
     Dates: start: 20220726, end: 20220726
  9. PACLITAXEL [Suspect]
     Active Substance: PACLITAXEL
     Dosage: 135 MILLIGRAM, QW
     Route: 065
     Dates: start: 20220803, end: 20220803
  10. PACLITAXEL [Suspect]
     Active Substance: PACLITAXEL
     Dosage: 135 MILLIGRAM, QW
     Route: 065
     Dates: start: 20220811, end: 20220811
  11. PACLITAXEL [Suspect]
     Active Substance: PACLITAXEL
     Dosage: 135 MILLIGRAM, QW
     Route: 065
     Dates: start: 20220817, end: 20220817
  12. PACLITAXEL [Suspect]
     Active Substance: PACLITAXEL
     Dosage: 135 MILLIGRAM, QW
     Route: 065
     Dates: start: 20220831, end: 20220831
  13. PEMBROLIZUMAB [Suspect]
     Active Substance: PEMBROLIZUMAB
     Indication: Breast cancer
     Dosage: 200 MILLIGRAM, Q3W
     Route: 042
     Dates: start: 20220530
  14. PEMBROLIZUMAB [Suspect]
     Active Substance: PEMBROLIZUMAB
     Dosage: 200 MILLIGRAM, Q3W
     Route: 042
     Dates: start: 20220621
  15. PEMBROLIZUMAB [Suspect]
     Active Substance: PEMBROLIZUMAB
     Dosage: 200 MILLIGRAM, Q3W
     Route: 042
     Dates: start: 20220720
  16. PEMBROLIZUMAB [Suspect]
     Active Substance: PEMBROLIZUMAB
     Dosage: 200 MILLIGRAM, Q3W
     Route: 042
     Dates: start: 20220811
  17. PEMBROLIZUMAB [Suspect]
     Active Substance: PEMBROLIZUMAB
     Dosage: 200 MILLIGRAM, Q3W
     Route: 042
     Dates: start: 20220914
  18. PEMBROLIZUMAB [Suspect]
     Active Substance: PEMBROLIZUMAB
     Dosage: 200 MILLIGRAM, Q3W
     Route: 042
     Dates: start: 20221005
  19. CYCLOPHOSPHAMIDE [Suspect]
     Active Substance: CYCLOPHOSPHAMIDE
     Indication: Product used for unknown indication
     Dosage: 600 MILLIGRAM/SQ. METER (80%, 811 MG)
     Route: 042
     Dates: start: 20220914, end: 20221005
  20. DOXORUBICIN [Suspect]
     Active Substance: DOXORUBICIN
     Indication: Product used for unknown indication
     Dosage: 60 MILLIGRAM/SQ. METER, Q3W (80%, 81 MG, Q3W)
     Route: 042
     Dates: start: 20220914, end: 20221005
  21. CARBOPLATIN [Suspect]
     Active Substance: CARBOPLATIN
     Indication: Product used for unknown indication
     Dosage: 175 MILLIGRAM, QW
     Route: 065
     Dates: start: 20220530, end: 20220530
  22. CARBOPLATIN [Suspect]
     Active Substance: CARBOPLATIN
     Dosage: 175 MILLIGRAM, QW
     Route: 065
     Dates: start: 20220607, end: 20220607
  23. CARBOPLATIN [Suspect]
     Active Substance: CARBOPLATIN
     Dosage: 175 MILLIGRAM, QW
     Route: 065
     Dates: start: 20220615, end: 20220615
  24. CARBOPLATIN [Suspect]
     Active Substance: CARBOPLATIN
     Dosage: 175 MILLIGRAM, QW
     Route: 065
     Dates: start: 20220621, end: 20220621
  25. CARBOPLATIN [Suspect]
     Active Substance: CARBOPLATIN
     Dosage: 175 MILLIGRAM, QW
     Route: 065
     Dates: start: 20220628, end: 20220628
  26. CARBOPLATIN [Suspect]
     Active Substance: CARBOPLATIN
     Dosage: 175 MILLIGRAM, QW
     Route: 065
     Dates: start: 20220705, end: 20220705
  27. CARBOPLATIN [Suspect]
     Active Substance: CARBOPLATIN
     Dosage: 175 MILLIGRAM, QW
     Route: 065
     Dates: start: 20220720, end: 20220720
  28. CARBOPLATIN [Suspect]
     Active Substance: CARBOPLATIN
     Dosage: 175 MILLIGRAM, QW
     Route: 065
     Dates: start: 20220726, end: 20220726
  29. CARBOPLATIN [Suspect]
     Active Substance: CARBOPLATIN
     Dosage: 175 MILLIGRAM, QW
     Route: 065
     Dates: start: 20220803, end: 20220803
  30. CARBOPLATIN [Suspect]
     Active Substance: CARBOPLATIN
     Dosage: 175 MILLIGRAM, QW
     Route: 065
     Dates: start: 20220811, end: 20220811
  31. CARBOPLATIN [Suspect]
     Active Substance: CARBOPLATIN
     Dosage: 175 MILLIGRAM, QW
     Route: 065
     Dates: start: 20220817, end: 20220817
  32. CARBOPLATIN [Suspect]
     Active Substance: CARBOPLATIN
     Dosage: 175 MILLIGRAM, QW
     Route: 065
     Dates: start: 20220831, end: 20220831

REACTIONS (2)
  - Diabetic ketoacidosis [Recovered/Resolved with Sequelae]
  - Myocarditis [Recovered/Resolved]

NARRATIVE: CASE EVENT DATE: 20221007
